FAERS Safety Report 8739935 (Version 5)
Quarter: 2016Q4

REPORT INFORMATION
  Report Type: Spontaneous
  Country: US (occurrence: US)
  Receive Date: 20120823
  Receipt Date: 20161207
  Transmission Date: 20170207
  Serious: Yes (Death, Other)
  Sender: FDA-Public Use
  Company Number: US-ASTRAZENECA-2012SE57048

PATIENT
  Age: 53 Year
  Sex: Male
  Weight: 95.3 kg

DRUGS (48)
  1. CRESTOR [Suspect]
     Active Substance: ROSUVASTATIN CALCIUM
     Indication: BLOOD CHOLESTEROL ABNORMAL
     Route: 048
     Dates: start: 2003
  2. CRESTOR [Suspect]
     Active Substance: ROSUVASTATIN CALCIUM
     Indication: LOW DENSITY LIPOPROTEIN INCREASED
     Dosage: 40.0MG UNKNOWN
     Route: 048
     Dates: start: 201401
  3. BRILINTA [Suspect]
     Active Substance: TICAGRELOR
     Indication: CARDIAC DISORDER
     Route: 048
     Dates: start: 2012
  4. BRILINTA [Suspect]
     Active Substance: TICAGRELOR
     Indication: MYOCARDIAL INFARCTION
     Route: 048
     Dates: start: 2012
  5. ALIGN [Concomitant]
     Active Substance: BIFIDOBACTERIUM LONGUM SUBSP. INFANTIS
     Dosage: 1 FOR FIRST 5 DAYS MONTH
  6. CRESTOR [Suspect]
     Active Substance: ROSUVASTATIN CALCIUM
     Indication: LOW DENSITY LIPOPROTEIN INCREASED
     Route: 048
     Dates: start: 2001
  7. CRESTOR [Suspect]
     Active Substance: ROSUVASTATIN CALCIUM
     Indication: LOW DENSITY LIPOPROTEIN INCREASED
     Route: 048
     Dates: start: 2001, end: 201401
  8. CRESTOR [Suspect]
     Active Substance: ROSUVASTATIN CALCIUM
     Indication: ARTERIOSCLEROSIS
     Route: 048
     Dates: start: 2003
  9. CRESTOR [Suspect]
     Active Substance: ROSUVASTATIN CALCIUM
     Indication: ARTERIOSCLEROSIS
     Dosage: 40.0MG UNKNOWN
     Route: 048
     Dates: start: 201401
  10. NEXIUM [Suspect]
     Active Substance: ESOMEPRAZOLE MAGNESIUM
     Indication: GASTRIC ULCER
     Route: 048
     Dates: start: 2010
  11. NEXIUM [Suspect]
     Active Substance: ESOMEPRAZOLE MAGNESIUM
     Indication: GASTROOESOPHAGEAL REFLUX DISEASE
     Route: 048
     Dates: start: 2010
  12. NEXIUM [Suspect]
     Active Substance: ESOMEPRAZOLE MAGNESIUM
     Indication: GASTRIC ULCER
     Route: 048
     Dates: start: 2012
  13. BRILINTA [Suspect]
     Active Substance: TICAGRELOR
     Indication: STENT PLACEMENT
     Route: 048
  14. ASPIRIN. [Suspect]
     Active Substance: ASPIRIN
     Route: 065
  15. LEVEMIR [Concomitant]
     Active Substance: INSULIN DETEMIR
     Indication: DIABETES MELLITUS
     Dosage: 10 UNITS AS NEEDED STARTING 6-7 YEARS AGO
     Route: 058
  16. CRESTOR [Suspect]
     Active Substance: ROSUVASTATIN CALCIUM
     Indication: BLOOD CHOLESTEROL ABNORMAL
     Route: 048
     Dates: start: 2001
  17. NEXIUM [Suspect]
     Active Substance: ESOMEPRAZOLE MAGNESIUM
     Indication: GASTROOESOPHAGEAL REFLUX DISEASE
     Route: 048
     Dates: start: 2012
  18. BRILINTA [Suspect]
     Active Substance: TICAGRELOR
     Indication: CARDIAC OPERATION
     Route: 048
     Dates: start: 2011
  19. BRILINTA [Suspect]
     Active Substance: TICAGRELOR
     Indication: STENT PLACEMENT
     Route: 048
     Dates: start: 2011
  20. LEVEMIR [Concomitant]
     Active Substance: INSULIN DETEMIR
     Indication: DIABETES MELLITUS
     Dosage: 10 UNITS AS NEEDED STARTING 6-7 YEARS AGO
     Route: 058
  21. LEVOXYL [Concomitant]
     Active Substance: LEVOTHYROXINE SODIUM
     Indication: THYROID DISORDER
     Route: 048
     Dates: start: 2001
  22. CRESTOR [Suspect]
     Active Substance: ROSUVASTATIN CALCIUM
     Indication: BLOOD CHOLESTEROL ABNORMAL
     Route: 048
     Dates: start: 2001, end: 201401
  23. BRILINTA [Suspect]
     Active Substance: TICAGRELOR
     Indication: MYOCARDIAL INFARCTION
     Route: 048
  24. BRILINTA [Suspect]
     Active Substance: TICAGRELOR
     Indication: STENT PLACEMENT
     Route: 048
     Dates: start: 2012
  25. METFORMIN [Concomitant]
     Active Substance: METFORMIN HYDROCHLORIDE
     Indication: DIABETES MELLITUS
     Dosage: 1000.0MG UNKNOWN
  26. PLAVIX [Concomitant]
     Active Substance: CLOPIDOGREL BISULFATE
  27. MORPHINE [Concomitant]
     Active Substance: MORPHINE
     Dosage: 0.25 MG UNKNOWN
     Dates: start: 20160926
  28. CRESTOR [Suspect]
     Active Substance: ROSUVASTATIN CALCIUM
     Indication: ARTERIOSCLEROSIS
     Route: 048
     Dates: start: 2001, end: 201401
  29. BRILINTA [Suspect]
     Active Substance: TICAGRELOR
     Indication: CARDIAC DISORDER
     Route: 048
  30. BRILINTA [Suspect]
     Active Substance: TICAGRELOR
     Indication: MYOCARDIAL INFARCTION
     Route: 048
     Dates: start: 2011
  31. LEVEMIR [Concomitant]
     Active Substance: INSULIN DETEMIR
     Indication: DIABETES MELLITUS
     Dosage: 30 UNITS DAILY
     Route: 058
     Dates: start: 2013
  32. CARVEDILOL. [Concomitant]
     Active Substance: CARVEDILOL
     Indication: CARDIAC DISORDER
     Route: 048
     Dates: start: 2001
  33. TAMSULOSIN [Concomitant]
     Active Substance: TAMSULOSIN
     Indication: PROSTATIC DISORDER
     Route: 048
     Dates: start: 2015
  34. CRESTOR [Suspect]
     Active Substance: ROSUVASTATIN CALCIUM
     Indication: BLOOD CHOLESTEROL ABNORMAL
     Dosage: CUTTING THE 40 MG TABLET OF CRESTOR TO EQUAL 20 MG DAILY UNKNOWN
     Route: 048
     Dates: start: 201403
  35. CRESTOR [Suspect]
     Active Substance: ROSUVASTATIN CALCIUM
     Indication: LOW DENSITY LIPOPROTEIN INCREASED
     Route: 048
     Dates: start: 2003
  36. CRESTOR [Suspect]
     Active Substance: ROSUVASTATIN CALCIUM
     Indication: LOW DENSITY LIPOPROTEIN INCREASED
     Dosage: CUTTING THE 40 MG TABLET OF CRESTOR TO EQUAL 20 MG DAILY UNKNOWN
     Route: 048
     Dates: start: 201403
  37. BRILINTA [Suspect]
     Active Substance: TICAGRELOR
     Indication: CARDIAC OPERATION
     Route: 048
  38. BRILINTA [Suspect]
     Active Substance: TICAGRELOR
     Indication: CARDIAC DISORDER
     Route: 048
     Dates: start: 2011
  39. BRILINTA [Suspect]
     Active Substance: TICAGRELOR
     Indication: CARDIAC OPERATION
     Route: 048
     Dates: start: 2012
  40. GLIMEPIRIDE. [Concomitant]
     Active Substance: GLIMEPIRIDE
     Indication: DIABETES MELLITUS
     Route: 048
     Dates: start: 2001
  41. HUMALOG [Concomitant]
     Active Substance: INSULIN LISPRO
     Indication: DIABETES MELLITUS
     Dosage: 12.5 UNITS DAILY
     Route: 058
     Dates: start: 2013
  42. LEVOXYL [Concomitant]
     Active Substance: LEVOTHYROXINE SODIUM
     Indication: THYROID DISORDER
     Route: 048
     Dates: start: 2001
  43. FINASTERIDE. [Concomitant]
     Active Substance: FINASTERIDE
     Indication: DYSURIA
     Route: 048
     Dates: start: 2015
  44. CRESTOR [Suspect]
     Active Substance: ROSUVASTATIN CALCIUM
     Indication: ARTERIOSCLEROSIS
     Route: 048
     Dates: start: 2001
  45. CRESTOR [Suspect]
     Active Substance: ROSUVASTATIN CALCIUM
     Indication: BLOOD CHOLESTEROL ABNORMAL
     Dosage: 40.0MG UNKNOWN
     Route: 048
     Dates: start: 201401
  46. CRESTOR [Suspect]
     Active Substance: ROSUVASTATIN CALCIUM
     Indication: ARTERIOSCLEROSIS
     Dosage: CUTTING THE 40 MG TABLET OF CRESTOR TO EQUAL 20 MG DAILY UNKNOWN
     Route: 048
     Dates: start: 201403
  47. LASIX [Concomitant]
     Active Substance: FUROSEMIDE
     Indication: DIURETIC THERAPY
     Dosage: 4.0MG UNKNOWN
  48. ANTIBIOTIC [Concomitant]
     Active Substance: UNSPECIFIED INGREDIENT
     Indication: INFECTION

REACTIONS (18)
  - Limb discomfort [Not Recovered/Not Resolved]
  - Diverticulitis [Unknown]
  - Myocardial infarction [Unknown]
  - Gastric ulcer [Not Recovered/Not Resolved]
  - Back disorder [Unknown]
  - Gastric disorder [Not Recovered/Not Resolved]
  - Erectile dysfunction [Unknown]
  - Intentional product use issue [Unknown]
  - Intentional product misuse [Unknown]
  - Brain neoplasm malignant [Fatal]
  - Pain [Unknown]
  - Viral diarrhoea [Unknown]
  - Muscle spasms [Recovered/Resolved]
  - Off label use [Unknown]
  - Dysuria [Unknown]
  - Palpitations [Unknown]
  - Infection [Unknown]
  - Drug dose omission [Not Recovered/Not Resolved]

NARRATIVE: CASE EVENT DATE: 2001
